FAERS Safety Report 17396715 (Version 3)
Quarter: 2020Q2

REPORT INFORMATION
  Report Type: Report from Study
  Country: DE (occurrence: DE)
  Receive Date: 20200210
  Receipt Date: 20200612
  Transmission Date: 20200713
  Serious: Yes (Hospitalization)
  Sender: FDA-Public Use
  Company Number: DE-ACTELION-A-CH2020-201343

PATIENT
  Age: 36 Year
  Sex: Female
  Weight: 67 kg

DRUGS (10)
  1. MACITENTAN [Suspect]
     Active Substance: MACITENTAN
     Indication: PULMONARY ARTERIAL HYPERTENSION
     Dosage: 10 MG, QD
     Route: 048
     Dates: start: 20181003, end: 201904
  2. SILDENAFIL. [Concomitant]
     Active Substance: SILDENAFIL
     Indication: PULMONARY ARTERIAL HYPERTENSION
     Dosage: 20 MG, QD
     Dates: start: 20181003, end: 201904
  3. DEKRISTOL [Concomitant]
     Active Substance: CHOLECALCIFEROL
     Indication: PROPHYLAXIS
     Dosage: UNK
     Route: 048
     Dates: start: 20180923
  4. TORASEMID [Concomitant]
     Active Substance: TORSEMIDE
     Indication: PROPHYLAXIS
     Dosage: UNK
     Route: 048
     Dates: start: 20180923
  5. BECLOMETHASONE [Concomitant]
     Active Substance: BECLOMETHASONE
     Indication: PROPHYLAXIS
  6. L-THYROXIN [Concomitant]
     Active Substance: LEVOTHYROXINE SODIUM
     Indication: HYPOTHYROIDISM
     Dosage: UNK
     Route: 048
     Dates: start: 2014
  7. MACITENTAN [Suspect]
     Active Substance: MACITENTAN
     Dosage: 10 MG, QD
     Route: 048
     Dates: start: 20200124
  8. SALBUTAMOL [Concomitant]
     Active Substance: ALBUTEROL
     Indication: PROPHYLAXIS
     Dosage: UNK
     Route: 055
     Dates: start: 20200214
  9. SALBUTAMOL [Concomitant]
     Active Substance: ALBUTEROL
     Indication: DYSPNOEA
     Dosage: UNK, PRN
     Route: 055
     Dates: start: 20190418, end: 201908
  10. BECLOMETHASONE [Concomitant]
     Active Substance: BECLOMETHASONE
     Indication: DYSPNOEA
     Dosage: UNK
     Route: 055
     Dates: start: 20190418

REACTIONS (13)
  - Iron deficiency anaemia [Unknown]
  - Pulmonary arterial hypertension [Unknown]
  - Exercise tolerance decreased [Unknown]
  - Condition aggravated [Unknown]
  - Oedema peripheral [Unknown]
  - N-terminal prohormone brain natriuretic peptide increased [Unknown]
  - Respiratory tract infection [Not Recovered/Not Resolved]
  - Dizziness [Unknown]
  - Disease progression [Unknown]
  - Pyrexia [Not Recovered/Not Resolved]
  - Anaemia [Not Recovered/Not Resolved]
  - Dyspnoea [Not Recovered/Not Resolved]
  - Chest discomfort [Unknown]

NARRATIVE: CASE EVENT DATE: 20200109
